FAERS Safety Report 11640443 (Version 2)
Quarter: 2015Q4

REPORT INFORMATION
  Report Type: Spontaneous
  Country: US (occurrence: US)
  Receive Date: 20151019
  Receipt Date: 20151103
  Transmission Date: 20160304
  Serious: Yes (Other)
  Sender: FDA-Public Use
  Company Number: US-GLAXOSMITHKLINE-US2015GSK146471

PATIENT
  Sex: Male

DRUGS (3)
  1. FARXIGA [Suspect]
     Active Substance: DAPAGLIFLOZIN PROPANEDIOL
     Indication: PRODUCT USED FOR UNKNOWN INDICATION
     Dosage: UNK
     Dates: start: 201508
  2. TANZEUM [Suspect]
     Active Substance: ALBIGLUTIDE
     Dosage: 30 MG WEEKLY
     Route: 042
  3. TANZEUM [Suspect]
     Active Substance: ALBIGLUTIDE
     Indication: TYPE 2 DIABETES MELLITUS
     Dosage: 30 MG, WE
     Route: 042
     Dates: start: 201508

REACTIONS (23)
  - Paraesthesia [Unknown]
  - Dehydration [Not Recovered/Not Resolved]
  - Altered state of consciousness [Unknown]
  - Vomiting [Not Recovered/Not Resolved]
  - Depression [Unknown]
  - Influenza [Unknown]
  - Impaired work ability [Not Recovered/Not Resolved]
  - Nausea [Not Recovered/Not Resolved]
  - Mood swings [Unknown]
  - Pancreatic disorder [Unknown]
  - Hyperhidrosis [Unknown]
  - Tooth erosion [Unknown]
  - Blood potassium decreased [Not Recovered/Not Resolved]
  - Haematemesis [Not Recovered/Not Resolved]
  - Abdominal pain upper [Not Recovered/Not Resolved]
  - Dizziness [Not Recovered/Not Resolved]
  - Feeding disorder [Not Recovered/Not Resolved]
  - Stress [Unknown]
  - Decreased appetite [Unknown]
  - General physical health deterioration [Unknown]
  - Insomnia [Not Recovered/Not Resolved]
  - Appetite disorder [Unknown]
  - Feeling abnormal [Not Recovered/Not Resolved]
